FAERS Safety Report 22386702 (Version 1)
Quarter: 2023Q2

REPORT INFORMATION
  Report Type: Spontaneous
  Country: US (occurrence: US)
  Receive Date: 20230531
  Receipt Date: 20230531
  Transmission Date: 20230722
  Serious: Yes (Hospitalization, Other)
  Sender: FDA-Public Use
  Company Number: US-AUROBINDO-AUR-APL-2023-038755

PATIENT
  Age: 18 Year
  Sex: Female

DRUGS (3)
  1. HYDROXYCHLOROQUINE [Suspect]
     Active Substance: HYDROXYCHLOROQUINE
     Indication: Product used for unknown indication
     Dosage: 6-8 GM
     Route: 048
  2. EPINEPHRINE [Concomitant]
     Active Substance: EPINEPHRINE
     Indication: Toxicity to various agents
     Dosage: UNK
     Route: 065
  3. MIDAZOLAM [Concomitant]
     Active Substance: MIDAZOLAM
     Indication: Toxicity to various agents
     Dosage: UNK
     Route: 042

REACTIONS (4)
  - Hypokalaemia [Unknown]
  - Acidosis [Unknown]
  - Toxicity to various agents [Unknown]
  - Hyperkalaemia [Unknown]
